FAERS Safety Report 26137169 (Version 1)
Quarter: 2025Q4

REPORT INFORMATION
  Report Type: Spontaneous
  Country: US (occurrence: None)
  Receive Date: 20251209
  Receipt Date: 20251209
  Transmission Date: 20260117
  Serious: No
  Sender: INCYTE
  Company Number: US-INCYTE CORPORATION-2025IN013544

PATIENT
  Age: 21 Year

DRUGS (1)
  1. JAKAFI [Suspect]
     Active Substance: RUXOLITINIB
     Indication: Acute lymphocytic leukaemia (in remission)
     Dosage: 5 MILLIGRAM, BID

REACTIONS (2)
  - Drug ineffective [Unknown]
  - Off label use [Unknown]
